FAERS Safety Report 13212189 (Version 3)
Quarter: 2017Q4

REPORT INFORMATION
  Report Type: Spontaneous
  Country: US (occurrence: US)
  Receive Date: 20170210
  Receipt Date: 20171006
  Transmission Date: 20180320
  Serious: Yes (Other)
  Sender: FDA-Public Use
  Company Number: US-SA-2017SA019613

PATIENT
  Age: 80 Year
  Sex: Male

DRUGS (1)
  1. LANTUS [Suspect]
     Active Substance: INSULIN GLARGINE
     Indication: TYPE 2 DIABETES MELLITUS
     Dosage: 5 UNITS,AM?45-50 UNITS PM
     Route: 051
     Dates: start: 1997

REACTIONS (5)
  - Product quality issue [Unknown]
  - Neck pain [Recovered/Resolved]
  - Eye disorder [Unknown]
  - Product use issue [Unknown]
  - Headache [Recovered/Resolved]

NARRATIVE: CASE EVENT DATE: 1997
